FAERS Safety Report 23356235 (Version 1)
Quarter: 2024Q1

REPORT INFORMATION
  Report Type: Spontaneous
  Country: GB (occurrence: GB)
  Receive Date: 20240102
  Receipt Date: 20240102
  Transmission Date: 20240409
  Serious: Yes (Life-Threatening, Other)
  Sender: FDA-Public Use
  Company Number: GB-MHRA-MED-202311171340410390-WLQPC

PATIENT
  Age: 60 Year
  Sex: Male
  Weight: 114 kg

DRUGS (4)
  1. GABAPENTIN [Suspect]
     Active Substance: GABAPENTIN
     Indication: Neuralgia
     Dosage: 600 MILLIGRAM, TWO TIMES A DAY
     Route: 065
     Dates: start: 20220211
  2. OXYCODONE [Suspect]
     Active Substance: OXYCODONE
     Indication: Pain
     Dosage: 120 MILLIGRAM, ONCE A DAY, 40MG BD SR AND 10MG QDS IMMEDIATE RELEASE
     Route: 065
     Dates: start: 20160803
  3. PROMETHAZINE [Suspect]
     Active Substance: PROMETHAZINE HYDROCHLORIDE
     Indication: Adverse drug reaction
     Dosage: 25-50MG AT NIGHT
     Route: 065
     Dates: start: 20210202
  4. PROMETHAZINE [Suspect]
     Active Substance: PROMETHAZINE HYDROCHLORIDE
     Indication: Insomnia

REACTIONS (4)
  - Respiratory depression [Recovering/Resolving]
  - Dyspnoea [Unknown]
  - Hypopnoea [Unknown]
  - Breath holding [Unknown]
